FAERS Safety Report 17975120 (Version 1)
Quarter: 2020Q3

REPORT INFORMATION
  Report Type: Spontaneous
  Country: US (occurrence: US)
  Receive Date: 20200702
  Receipt Date: 20200702
  Transmission Date: 20201103
  Serious: Yes (Other)
  Sender: FDA-Public Use
  Company Number: US-PERRIGO-20US009333

PATIENT
  Age: 71 Year
  Sex: Female
  Weight: 62.5 kg

DRUGS (1)
  1. EXCHANGE SELECT HEMORRHOIDAL (COCOA BUTTER\PHENYLEPHRINE HYDROCHLORIDE) [Suspect]
     Active Substance: COCOA BUTTER\PHENYLEPHRINE HYDROCHLORIDE
     Indication: CONSTIPATION
     Dosage: 1 SUPPOSITORY, SINGLE
     Route: 054
     Dates: start: 20200618, end: 20200618

REACTIONS (3)
  - Condition aggravated [Unknown]
  - Rash pruritic [Recovering/Resolving]
  - Off label use [Recovered/Resolved]

NARRATIVE: CASE EVENT DATE: 20200618
